FAERS Safety Report 12899838 (Version 4)
Quarter: 2020Q2

REPORT INFORMATION
  Report Type: Spontaneous
  Country: US (occurrence: US)
  Receive Date: 20161101
  Receipt Date: 20200424
  Transmission Date: 20200713
  Serious: Yes (Congenital Anomaly)
  Sender: FDA-Public Use
  Company Number: US-PFIZER INC-2016054839

PATIENT
  Sex: Female
  Weight: 3.63 kg

DRUGS (28)
  1. PRENATAL VITAMINS [Concomitant]
     Active Substance: VITAMINS
     Dosage: 1 DF, 1X/DAY
     Route: 064
     Dates: start: 20151129, end: 20160126
  2. FOLIC ACID. [Concomitant]
     Active Substance: FOLIC ACID
     Dosage: 1 G, 1X/DAY
     Route: 064
     Dates: start: 20160415, end: 20160829
  3. RHOGAM [Concomitant]
     Active Substance: HUMAN RHO(D) IMMUNE GLOBULIN
     Dosage: UNK UNK, SINGLE
     Route: 064
     Dates: start: 20160617, end: 20160617
  4. PRENATAL VITAMINS [Concomitant]
     Active Substance: VITAMINS
     Dosage: 2 DF, 1X/DAY
     Route: 064
     Dates: start: 20160127, end: 20160829
  5. TDAP IPV [Concomitant]
     Active Substance: DIPHTHERIA AND TETANUS TOXOIDS AND ACELLULAR PERTUSSIS ADSORBED AND INACTIVATED POLIOVIRUS VACCINE
     Dosage: UNK, SINGLE
     Route: 064
     Dates: start: 20160707, end: 20160707
  6. ZOFRAN [Concomitant]
     Active Substance: ONDANSETRON HYDROCHLORIDE
     Indication: VOMITING
     Dosage: 2 MG, WEEKLY
     Route: 064
     Dates: start: 20160415, end: 20160829
  7. ZOFRAN [Concomitant]
     Active Substance: ONDANSETRON HYDROCHLORIDE
     Dosage: 4 MG, AS NEEDED
     Route: 064
     Dates: start: 201603, end: 201608
  8. ZOFRAN [Concomitant]
     Active Substance: ONDANSETRON HYDROCHLORIDE
     Dosage: 4 MG, UNK (FRQ:4; UNIT: WK)
     Route: 064
     Dates: start: 20160204, end: 20160414
  9. VITAMIN B6 [Concomitant]
     Active Substance: PYRIDOXINE HYDROCHLORIDE
     Indication: NAUSEA
     Dosage: 100 MG, DAILY
     Route: 064
     Dates: start: 20160128, end: 20160413
  10. PRENATAL VITAMINS [Concomitant]
     Active Substance: VITAMINS
     Dosage: UNK, DAILY
     Dates: start: 201601, end: 201609
  11. TUMS [Concomitant]
     Active Substance: CALCIUM CARBONATE
     Indication: DYSPEPSIA
     Dosage: 3 DF, 1X/DAY
     Route: 064
     Dates: start: 20160101, end: 20160829
  12. FOLIC ACID. [Concomitant]
     Active Substance: FOLIC ACID
     Dosage: 800 UG, 1X/DAY
     Route: 064
     Dates: start: 20151129, end: 20160126
  13. FLU VACCINE VII [Concomitant]
     Active Substance: INFLUENZA VIRUS VACCINE
     Indication: IMMUNISATION
     Dosage: UNK UNK, SINGLE
     Route: 064
     Dates: start: 20151014, end: 20151014
  14. XELJANZ [Suspect]
     Active Substance: TOFACITINIB CITRATE
     Indication: JUVENILE IDIOPATHIC ARTHRITIS
     Dosage: 5 MG, 2X/DAY
     Route: 064
     Dates: start: 20140801, end: 20160829
  15. DHA [Concomitant]
     Active Substance: DIETARY SUPPLEMENT
     Indication: SUPPLEMENTATION THERAPY
     Dosage: 1 DF, 1X/DAY
     Route: 064
     Dates: start: 20151129, end: 20160126
  16. ZOFRAN [Concomitant]
     Active Substance: ONDANSETRON HYDROCHLORIDE
     Indication: NAUSEA
     Dosage: 1 MG, WEEKLY (DOSE: 4; UNIT: MG; FREQ: 4; UNIT: WK)
     Route: 064
     Dates: start: 20160404, end: 20160414
  17. XELJANZ [Suspect]
     Active Substance: TOFACITINIB CITRATE
     Indication: RHEUMATOID ARTHRITIS
  18. COFFEE [Concomitant]
     Active Substance: ARABICA COFFEE BEAN\COFFEE BEAN
     Dosage: UNK (DOSE: 1; UNIT: SERVING; FREQ: 3; UNIT: WK)
     Route: 064
     Dates: start: 20151129, end: 20160829
  19. DHA [Concomitant]
     Active Substance: DIETARY SUPPLEMENT
     Dosage: 2 DF, 1X/DAY
     Route: 064
     Dates: start: 20160127, end: 20160829
  20. KEFLEX [Concomitant]
     Active Substance: CEPHALEXIN
     Indication: URINARY TRACT INFECTION
     Dosage: 500 MG, 2X/DAY
     Route: 064
     Dates: start: 20151214, end: 20151220
  21. FOLIC ACID. [Concomitant]
     Active Substance: FOLIC ACID
     Dosage: 1 MG, 1X/DAY
     Route: 064
     Dates: start: 20160415, end: 20160829
  22. FLU [Concomitant]
     Active Substance: INFLUENZA VIRUS VACCINE
     Indication: IMMUNISATION
     Dosage: 1 DF, 1X/DAY
     Route: 064
     Dates: start: 20151014, end: 20151014
  23. VITAMIN B6 [Concomitant]
     Active Substance: PYRIDOXINE HYDROCHLORIDE
     Dosage: 100 MG, 1X/DAY
     Route: 064
     Dates: start: 20160127, end: 20160413
  24. PRENATAL VITAMINS [Concomitant]
     Active Substance: VITAMINS
     Indication: PREGNANCY
     Dosage: UNK UNK, DAILY
     Route: 064
     Dates: start: 20151101
  25. CAFFEINE. [Concomitant]
     Active Substance: CAFFEINE
     Dosage: UNK (DOSE: 1; UNIT: SERVING; FREQ: 3; UNIT: WK)
     Route: 064
     Dates: start: 20151129, end: 20160829
  26. CAFFEINE. [Concomitant]
     Active Substance: CAFFEINE
     Dosage: UNK (DOSE: 1; UNIT: SERVING; FREQ: 2; UNIT: WK)
     Route: 064
     Dates: start: 20151129, end: 20160731
  27. TDAP IPV [Concomitant]
     Active Substance: DIPHTHERIA AND TETANUS TOXOIDS AND ACELLULAR PERTUSSIS ADSORBED AND INACTIVATED POLIOVIRUS VACCINE
     Indication: IMMUNISATION
     Dosage: 1 DF, 1X/DAY
     Route: 064
     Dates: start: 20160715, end: 20160715
  28. ZOFRAN [Concomitant]
     Active Substance: ONDANSETRON HYDROCHLORIDE
     Dosage: 4 MG, 2X/WEEK (FRQ:2; UNIT: WK)
     Route: 064
     Dates: start: 20160415, end: 20160829

REACTIONS (3)
  - Congenital hydronephrosis [Unknown]
  - Maternal exposure during pregnancy [Unknown]
  - Congenital vesicoureteric reflux [Unknown]

NARRATIVE: CASE EVENT DATE: 20160829
